FAERS Safety Report 14664472 (Version 2)
Quarter: 2018Q2

REPORT INFORMATION
  Report Type: Spontaneous
  Country: LS (occurrence: LS)
  Receive Date: 20180321
  Receipt Date: 20180423
  Transmission Date: 20180711
  Serious: Yes (Hospitalization, Other)
  Sender: FDA-Public Use
  Company Number: LS-PFIZER INC-2018116417

PATIENT
  Age: 26 Year
  Sex: Male
  Weight: 45 kg

DRUGS (10)
  1. COTRIMOXAZOLE [Concomitant]
     Active Substance: SULFAMETHOXAZOLE\TRIMETHOPRIM
     Indication: HIV INFECTION
     Dosage: UNK
     Dates: start: 20180205
  2. PROTIONAMIDE [Suspect]
     Active Substance: PROTIONAMIDE
     Indication: TUBERCULOSIS
     Dosage: 500 MG, 1X/DAY
     Route: 048
     Dates: start: 20180206
  3. METOCLOPRAMIDE. [Concomitant]
     Active Substance: METOCLOPRAMIDE
     Indication: VOMITING
  4. PYRAZINAMIDE. [Suspect]
     Active Substance: PYRAZINAMIDE
     Indication: TUBERCULOSIS
     Dosage: 1600 MG, 1X/DAY
     Route: 048
     Dates: start: 20180206, end: 20180212
  5. CYCLOSERINE. [Suspect]
     Active Substance: CYCLOSERINE
     Indication: TUBERCULOSIS
     Dosage: 500 MG, 1X/DAY
     Route: 048
     Dates: start: 20180206, end: 20180212
  6. LINEZOLID. [Suspect]
     Active Substance: LINEZOLID
     Dosage: 600 MG, 1X/DAY
     Route: 048
     Dates: start: 20180206
  7. DELAMANID [Suspect]
     Active Substance: DELAMANID
     Indication: TUBERCULOSIS
     Dosage: 200 MG, 1X/DAY
     Route: 048
     Dates: start: 20180206
  8. LEVOFLOXACIN. [Suspect]
     Active Substance: LEVOFLOXACIN
     Indication: TUBERCULOSIS
     Dosage: 750 MG, 1X/DAY
     Route: 048
     Dates: start: 20180206
  9. METOCLOPRAMIDE. [Concomitant]
     Active Substance: METOCLOPRAMIDE
     Indication: NAUSEA
     Dosage: UNK
     Dates: start: 20180205
  10. DIPHENHYDRAMINE. [Concomitant]
     Active Substance: DIPHENHYDRAMINE
     Indication: COUGH
     Dosage: UNK
     Dates: start: 20180205, end: 20180212

REACTIONS (6)
  - Feeling drunk [Unknown]
  - Altered state of consciousness [Recovering/Resolving]
  - Dehydration [Unknown]
  - Tremor [Recovering/Resolving]
  - Vomiting [Unknown]
  - Hypokalaemia [Unknown]

NARRATIVE: CASE EVENT DATE: 201802
